FAERS Safety Report 20541504 (Version 1)
Quarter: 2022Q1

REPORT INFORMATION
  Report Type: Spontaneous
  Country: ES (occurrence: ES)
  Receive Date: 20220302
  Receipt Date: 20220302
  Transmission Date: 20220423
  Serious: Yes (Other)
  Sender: FDA-Public Use
  Company Number: ES-JNJFOC-20211042846

PATIENT
  Age: 43 Year
  Sex: Female

DRUGS (1)
  1. STELARA [Suspect]
     Active Substance: USTEKINUMAB
     Indication: Psoriasis
     Route: 058

REACTIONS (5)
  - Hysterectomy [Unknown]
  - Dactylitis [Recovered/Resolved]
  - Joint stiffness [Recovered/Resolved]
  - Arthritis [Recovered/Resolved]
  - Psoriasis [Unknown]
